FAERS Safety Report 10187639 (Version 1)
Quarter: 2014Q2

REPORT INFORMATION
  Report Type: Spontaneous
  Country: US (occurrence: US)
  Receive Date: 20140522
  Receipt Date: 20140522
  Transmission Date: 20141212
  Serious: No
  Sender: FDA-Public Use
  Company Number: US-SANOFI-AVENTIS-2013SA085644

PATIENT
  Age: 52 Year
  Sex: Female

DRUGS (1)
  1. LANTUS SOLOSTAR [Suspect]
     Dosage: 8-9 YEAR AGO
     Route: 065

REACTIONS (3)
  - Arthritis [Unknown]
  - Pain [Unknown]
  - Gait disturbance [Unknown]
